FAERS Safety Report 11984393 (Version 1)
Quarter: 2016Q1

REPORT INFORMATION
  Report Type: Spontaneous
  Country: US (occurrence: US)
  Receive Date: 20160201
  Receipt Date: 20160201
  Transmission Date: 20160526
  Serious: No
  Sender: FDA-Public Use
  Company Number: US-KADMON PHARMACEUTICALS, LLC-KAD201506-001881

PATIENT
  Sex: Male

DRUGS (2)
  1. INTERFERON [Concomitant]
     Active Substance: INTERFERON
     Indication: HEPATITIS C
  2. RIBAVIRIN. [Suspect]
     Active Substance: RIBAVIRIN
     Indication: HEPATITIS C

REACTIONS (4)
  - Hepatitis C [Unknown]
  - Treatment failure [Unknown]
  - Hepatic fibrosis [Unknown]
  - General physical health deterioration [Unknown]
